FAERS Safety Report 6875025-7 (Version None)
Quarter: 2010Q3

REPORT INFORMATION
  Report Type: 
  Country: None (occurrence: None)
  Receive Date: 20100727
  Receipt Date: 20100722
  Transmission Date: 20110219
  Serious: Yes (Hospitalization, Other)
  Sender: FDA-Public Use
  Company Number: IN-AMGEN-UK311156

PATIENT
  Sex: Female

DRUGS (10)
  1. DENOSUMAB [Suspect]
     Indication: METASTASES TO BONE
     Route: 058
     Dates: start: 20070515
  2. ZOMETA [Suspect]
     Indication: METASTASES TO BONE
     Route: 042
     Dates: start: 20070515
  3. ONDANSETRON [Concomitant]
     Dates: start: 20080319, end: 20080806
  4. CALCIUM [Concomitant]
     Dates: start: 20080318, end: 20081001
  5. VITAMIN D3 [Concomitant]
     Dates: start: 20080318, end: 20081001
  6. ATENOLOL [Concomitant]
     Dates: start: 20080710, end: 20081001
  7. TRAMADOL HYDROCHLORIDE [Concomitant]
     Dates: start: 20080710, end: 20081001
  8. ZOLPIDEM [Concomitant]
     Dates: start: 20080809, end: 20081001
  9. LORAZEPAM [Concomitant]
     Dates: start: 20080513, end: 20080808
  10. DEXAMETHASONE [Concomitant]
     Dates: start: 20080809, end: 20080809

REACTIONS (4)
  - CONVULSION [None]
  - DECREASED APPETITE [None]
  - SKIN ULCER [None]
  - WEIGHT DECREASED [None]
